FAERS Safety Report 6493449-7 (Version None)
Quarter: 2009Q4

REPORT INFORMATION
  Report Type: 
  Country: None (occurrence: None)
  Receive Date: 20091211
  Receipt Date: 20091211
  Transmission Date: 20100525
  Serious: Yes (Death, Hospitalization)
  Sender: FDA-Public Use
  Company Number: None

PATIENT
  Sex: Female
  Weight: 88 kg

DRUGS (2)
  1. CISPLATIN [Suspect]
     Dosage: 160 MG
  2. ETOPOSIDE [Suspect]
     Dosage: 600 MG

REACTIONS (13)
  - ACUTE RESPIRATORY DISTRESS SYNDROME [None]
  - BLOOD CULTURE POSITIVE [None]
  - CARDIAC ARREST [None]
  - CULTURE URINE POSITIVE [None]
  - EJECTION FRACTION DECREASED [None]
  - ESCHERICHIA INFECTION [None]
  - HEPATIC FUNCTION ABNORMAL [None]
  - LACTIC ACIDOSIS [None]
  - NEUTROPENIA [None]
  - RENAL IMPAIRMENT [None]
  - SEPTIC SHOCK [None]
  - STREPTOCOCCAL INFECTION [None]
  - SUPRAVENTRICULAR TACHYCARDIA [None]
